FAERS Safety Report 12882261 (Version 2)
Quarter: 2016Q4

REPORT INFORMATION
  Report Type: Spontaneous
  Country: IT (occurrence: IT)
  Receive Date: 20161025
  Receipt Date: 20161101
  Transmission Date: 20170207
  Serious: Yes (Other)
  Sender: FDA-Public Use
  Company Number: PHHY2016IT144685

PATIENT
  Age: 43 Year
  Sex: Female
  Weight: 70 kg

DRUGS (4)
  1. CAPECITABINA ACCORD [Suspect]
     Active Substance: CAPECITABINE
     Indication: BREAST CANCER METASTATIC
     Dosage: 2000 MG/M2, QD
     Route: 048
     Dates: start: 20160526, end: 20160907
  2. TYVERB [Suspect]
     Active Substance: LAPATINIB
     Dosage: REDUCED DOSE
     Route: 065
     Dates: start: 20160927, end: 20161012
  3. CAPECITABINA ACCORD [Suspect]
     Active Substance: CAPECITABINE
     Dosage: REDUCED DOSE
     Route: 048
     Dates: start: 20160927, end: 20161012
  4. TYVERB [Suspect]
     Active Substance: LAPATINIB
     Indication: BREAST CANCER METASTATIC
     Dosage: 1250 MG, QD
     Route: 065
     Dates: start: 20160526, end: 20160907

REACTIONS (4)
  - Asthenia [Recovered/Resolved]
  - Diarrhoea [Recovered/Resolved]
  - Anaemia [Recovered/Resolved]
  - Weight decreased [Recovered/Resolved]

NARRATIVE: CASE EVENT DATE: 20160601
